FAERS Safety Report 8427485-8 (Version None)
Quarter: 2012Q2

REPORT INFORMATION
  Report Type: 
  Country: None (occurrence: None)
  Receive Date: 20120611
  Receipt Date: 20120531
  Transmission Date: 20120825
  Serious: Yes (Other)
  Sender: FDA-Public Use
  Company Number: FR-ELI_LILLY_AND_COMPANY-FR201205010620

PATIENT
  Sex: Male

DRUGS (5)
  1. ARANESP [Concomitant]
     Dosage: UNK
     Dates: start: 20111201
  2. CISPLATIN [Concomitant]
     Indication: BRONCHIAL CARCINOMA
     Dosage: UNK
     Dates: start: 20111026, end: 20120111
  3. FERO-GRAD [Concomitant]
     Dosage: UNK
     Dates: start: 20120201
  4. GEMZAR [Suspect]
     Indication: BRONCHIAL CARCINOMA
     Dosage: 1250 MG/M2, UNK
     Route: 042
     Dates: start: 20111026, end: 20120418
  5. SYMBICORT [Concomitant]
     Dosage: UNK
     Dates: start: 20111001

REACTIONS (2)
  - PLEURAL EFFUSION [None]
  - INTERSTITIAL LUNG DISEASE [None]
